FAERS Safety Report 9334960 (Version 2)
Quarter: 2013Q3

REPORT INFORMATION
  Report Type: Spontaneous
  Country: US (occurrence: US)
  Receive Date: 20130606
  Receipt Date: 20130703
  Transmission Date: 20140515
  Serious: No
  Sender: FDA-Public Use
  Company Number: US-TEVA-410704USA

PATIENT
  Age: 31 Year
  Sex: Female
  Weight: 52.21 kg

DRUGS (2)
  1. PLAN B ONE-STEP [Suspect]
     Indication: POST COITAL CONTRACEPTION
     Dosage: 1.5 MILLIGRAM DAILY;
     Route: 048
     Dates: start: 20130531, end: 20130531
  2. ACCUTANE [Concomitant]
     Indication: ACNE

REACTIONS (2)
  - Menstruation irregular [Recovered/Resolved]
  - Nausea [Recovered/Resolved]
